FAERS Safety Report 5242876-4 (Version None)
Quarter: 2007Q1

REPORT INFORMATION
  Report Type: 
  Country: None (occurrence: None)
  Receive Date: 20070221
  Receipt Date: 20070213
  Transmission Date: 20070707
  Serious: Yes (Death)
  Sender: FDA-Public Use
  Company Number: JP-ELI_LILLY_AND_COMPANY-JP200702002862

PATIENT
  Age: 85 Year
  Sex: Female
  Weight: 61.5 kg

DRUGS (6)
  1. RALOXIFENE HCL [Suspect]
     Indication: OSTEOPOROSIS POSTMENOPAUSAL
     Dosage: 60 MG, DAILY (1/D)
     Route: 048
     Dates: start: 20050518
  2. LOXONIN [Concomitant]
     Indication: OSTEOARTHRITIS
     Dosage: 180 MG, DAILY (1/D)
     Route: 048
     Dates: start: 20031001
  3. SOLON [Concomitant]
     Indication: GASTRITIS
     Dosage: 150 MG, DAILY (1/D)
     Route: 048
     Dates: start: 20031001
  4. MOVER [Concomitant]
     Indication: RHEUMATOID ARTHRITIS
     Dosage: 300 MG, DAILY (1/D)
     Route: 048
     Dates: start: 20031001
  5. ADALAT [Concomitant]
     Indication: HYPERTENSION
     Dosage: 10 MG, DAILY (1/D)
     Route: 048
     Dates: start: 20031001
  6. ALFAROL [Concomitant]
     Indication: OSTEOPOROSIS POSTMENOPAUSAL
     Dosage: 1 UG, DAILY (1/D)
     Route: 048
     Dates: start: 20040818

REACTIONS (1)
  - DEATH [None]
